FAERS Safety Report 7471547-9 (Version None)
Quarter: 2011Q2

REPORT INFORMATION
  Report Type: 
  Country: None (occurrence: None)
  Receive Date: 20110502
  Receipt Date: 20110419
  Transmission Date: 20111010
  Serious: Yes (Other)
  Sender: FDA-Public Use
  Company Number: FK201100827

PATIENT
  Age: 47 Year
  Sex: Female

DRUGS (4)
  1. BLEOMYCIN (MANUFACTURER UNKNOWN) (BLEOMYCIN) (BLEOMYCIN) [Concomitant]
     Indication: HODGKIN'S DISEASE NODULAR SCLEROSIS STAGE UNSPECIFIED
     Dosage: 6 CYCLES
  2. DACARBAZINE [Suspect]
     Indication: HODGKIN'S DISEASE NODULAR SCLEROSIS STAGE UNSPECIFIED
     Dosage: 6 CYCLES
  3. DOXORUBICIN HCL [Suspect]
     Indication: HODGKIN'S DISEASE NODULAR SCLEROSIS STAGE UNSPECIFIED
     Dosage: 6 CYCLES
  4. VINBLASTINE SULFATE [Suspect]
     Indication: HODGKIN'S DISEASE NODULAR SCLEROSIS STAGE UNSPECIFIED
     Dosage: 6 CYCLES

REACTIONS (1)
  - THYMUS ENLARGEMENT [None]
